FAERS Safety Report 13876998 (Version 2)
Quarter: 2017Q3

REPORT INFORMATION
  Report Type: Spontaneous
  Country: US (occurrence: US)
  Receive Date: 20170817
  Receipt Date: 20170912
  Transmission Date: 20171127
  Serious: Yes (Hospitalization, Other)
  Sender: FDA-Public Use
  Company Number: US-LUNDBECK-DKLU2035740

PATIENT
  Age: 17 Year
  Sex: Female

DRUGS (3)
  1. SABRIL [Suspect]
     Active Substance: VIGABATRIN
     Indication: PARTIAL SEIZURES
     Route: 048
     Dates: start: 20170426
  2. SABRIL [Suspect]
     Active Substance: VIGABATRIN
     Indication: FOCAL DYSCOGNITIVE SEIZURES
     Route: 048
     Dates: start: 20170426
  3. SABRIL [Suspect]
     Active Substance: VIGABATRIN
     Indication: EPILEPSY
     Route: 048
     Dates: start: 20170426

REACTIONS (2)
  - Drug withdrawal convulsions [Unknown]
  - Seizure [Unknown]

NARRATIVE: CASE EVENT DATE: 20170811
